FAERS Safety Report 7412905-8 (Version None)
Quarter: 2011Q2

REPORT INFORMATION
  Report Type: 
  Country: None (occurrence: None)
  Receive Date: 20110404
  Receipt Date: 20110322
  Transmission Date: 20111010
  Serious: Yes (Other)
  Sender: FDA-Public Use
  Company Number: 028231

PATIENT
  Sex: Female
  Weight: 81 kg

DRUGS (6)
  1. LACOSAMIDE [Suspect]
     Indication: EPILEPSY
     Dosage: ORAL (150, 100  MG BID, (DOSE REDUCED)
     Route: 048
     Dates: start: 20091128
  2. LACOSAMIDE [Suspect]
     Indication: EPILEPSY
     Dosage: ORAL (150, 100  MG BID, (DOSE REDUCED)
     Route: 048
     Dates: start: 20091101
  3. FRISIUM [Concomitant]
  4. KEPPRA [Concomitant]
  5. EPILIM [Concomitant]
  6. TRILEPTAL [Concomitant]

REACTIONS (5)
  - MALAISE [None]
  - APHASIA [None]
  - THERAPEUTIC PRODUCT INEFFECTIVE [None]
  - AMNESIA [None]
  - ANXIETY [None]
